FAERS Safety Report 9523611 (Version 2)
Quarter: 2013Q4

REPORT INFORMATION
  Report Type: Spontaneous
  Country: BR (occurrence: BR)
  Receive Date: 20130913
  Receipt Date: 20131003
  Transmission Date: 20140711
  Serious: Yes (Death, Life-Threatening, Hospitalization, Disabling)
  Sender: FDA-Public Use
  Company Number: BR-B.I. PHARMACEUTICALS,INC./RIDGEFIELD-2013-BR-01036BR

PATIENT
  Age: 90 Year
  Sex: Female
  Weight: 67 kg

DRUGS (2)
  1. MICARDIS [Suspect]
     Indication: HYPERTENSION
     Dosage: 80 MG
     Route: 048
     Dates: end: 20130820
  2. ASPIRINA [Concomitant]
     Indication: ANTICOAGULANT THERAPY
     Dates: end: 20130820

REACTIONS (1)
  - Cerebrovascular accident [Fatal]
